FAERS Safety Report 9248551 (Version 2)
Quarter: 2013Q2

REPORT INFORMATION
  Report Type: Spontaneous
  Country: US (occurrence: US)
  Receive Date: 20130423
  Receipt Date: 20130612
  Transmission Date: 20140414
  Serious: No
  Sender: FDA-Public Use
  Company Number: US-VERTEX PHARMACEUTICALS INC.-2013-005251

PATIENT
  Age: 54 Year
  Sex: Male
  Weight: 71 kg

DRUGS (8)
  1. INCIVEK [Suspect]
     Indication: HEPATITIS C
     Dosage: 750 MG, TID
     Route: 048
     Dates: start: 20130419
  2. COPEGUS [Suspect]
     Indication: HEPATITIS C
     Dosage: 600 MG AM, 400 MG PM
     Dates: start: 20130419
  3. PEGASYS [Suspect]
     Indication: HEPATITIS C
     Dosage: 180 ?G, QW
     Route: 058
     Dates: start: 20130419
  4. FLEXERIL [Concomitant]
     Dosage: 10 MG, PRN
  5. NEURONTIN [Concomitant]
     Dosage: 300 MG, QD
  6. TRAMADOL HCL [Concomitant]
     Dosage: 50 MG, PRN
  7. MILK OF MAGNESIA [Concomitant]
     Indication: CONSTIPATION
  8. MIRALAX [Concomitant]
     Indication: CONSTIPATION

REACTIONS (1)
  - Dyspepsia [Not Recovered/Not Resolved]
